FAERS Safety Report 4785679-7 (Version None)
Quarter: 2005Q3

REPORT INFORMATION
  Report Type: 
  Country: None (occurrence: None)
  Receive Date: 20050929
  Receipt Date: 20050921
  Transmission Date: 20060218
  Serious: Yes (Death)
  Sender: FDA-Public Use
  Company Number: 05-07-1318

PATIENT
  Age: 44 Year
  Sex: Female
  Weight: 122.4712 kg

DRUGS (9)
  1. CLOZAPINE [Suspect]
     Indication: SCHIZOAFFECTIVE DISORDER
     Dosage: 400-750MG QD, 600MG QD, ORAL
     Route: 048
     Dates: start: 19991001, end: 20050701
  2. NICOTINIC ACID [Concomitant]
  3. GLIBOMET [Concomitant]
  4. LANSOPRAZOLE [Concomitant]
  5. DOCUSATE SODIUM [Concomitant]
  6. PLANTAGO OVATA [Concomitant]
  7. QUETIAPINE FUMARATE [Concomitant]
  8. QUETIAPINE FUMARATE [Concomitant]
  9. ESCITALOPRAM OXALATE [Concomitant]

REACTIONS (2)
  - ASTHMA [None]
  - RESPIRATORY ARREST [None]
